FAERS Safety Report 24015424 (Version 2)
Quarter: 2025Q1

REPORT INFORMATION
  Report Type: Spontaneous
  Country: JP (occurrence: JP)
  Receive Date: 20240626
  Receipt Date: 20250305
  Transmission Date: 20250409
  Serious: No
  Sender: ELI LILLY AND COMPANY
  Company Number: JP-NShinyaku-EVA202404134ZZLILLY

PATIENT
  Age: 79 Year
  Sex: Male

DRUGS (5)
  1. TADALAFIL [Suspect]
     Active Substance: TADALAFIL
     Indication: Benign prostatic hyperplasia
     Dosage: 2.5 MG, DAILY
     Route: 048
     Dates: start: 20160728
  2. AMLODIPINE BESYLATE\AZILSARTAN [Concomitant]
     Active Substance: AMLODIPINE BESYLATE\AZILSARTAN
  3. MIRABEGRON [Concomitant]
     Active Substance: MIRABEGRON
  4. TAMSULOSIN HYDROCHLORIDE [Concomitant]
     Active Substance: TAMSULOSIN HYDROCHLORIDE
  5. DAYVIGO [Concomitant]
     Active Substance: LEMBOREXANT

REACTIONS (1)
  - Cataract [Unknown]
